FAERS Safety Report 7627528-5 (Version None)
Quarter: 2011Q3

REPORT INFORMATION
  Report Type: 
  Country: None (occurrence: None)
  Receive Date: 20110721
  Receipt Date: 20081130
  Transmission Date: 20111222
  Serious: Yes (Other)
  Sender: FDA-Public Use
  Company Number: US-BAYER-200840132NA

PATIENT
  Age: 55 Year
  Sex: Male
  Weight: 89.796 kg

DRUGS (7)
  1. ACETYLSALICYLIC ACID SRT [Concomitant]
     Dosage: 81MG
     Route: 048
     Dates: start: 20050913
  2. TRASYLOL [Suspect]
     Indication: PRODUCT USED FOR UNKNOWN INDICATION
     Dosage: UNK
     Route: 042
     Dates: start: 20051117
  3. TRASYLOL [Suspect]
     Dosage: UNK
     Route: 042
     Dates: start: 20061101
  4. ATENOLOL [Concomitant]
     Dosage: 50MG
     Route: 048
     Dates: start: 20040114
  5. LISINOPRIL [Concomitant]
     Dosage: 10MG
     Route: 048
     Dates: start: 20050713
  6. DIOVAN [Concomitant]
  7. HYDROCHLOROTHIAZIDE [Concomitant]
     Dosage: 50MG
     Route: 048
     Dates: start: 20051114

REACTIONS (12)
  - STRESS [None]
  - FEAR [None]
  - RENAL INJURY [None]
  - ANXIETY [None]
  - PAIN [None]
  - MULTI-ORGAN FAILURE [None]
  - RENAL FAILURE [None]
  - EMOTIONAL DISTRESS [None]
  - UNEVALUABLE EVENT [None]
  - ANHEDONIA [None]
  - RENAL IMPAIRMENT [None]
  - INJURY [None]
